FAERS Safety Report 20878034 (Version 9)
Quarter: 2024Q1

REPORT INFORMATION
  Report Type: Spontaneous
  Country: IN (occurrence: IN)
  Receive Date: 20220526
  Receipt Date: 20240125
  Transmission Date: 20240410
  Serious: Yes (Other)
  Sender: FDA-Public Use
  Company Number: IN-PFIZER INC-2021289183

PATIENT
  Age: 58 Year
  Sex: Male

DRUGS (5)
  1. DACOMITINIB [Suspect]
     Active Substance: DACOMITINIB
     Indication: Lung adenocarcinoma stage IV
     Dosage: 30 MG, 1X/DAY
     Route: 048
     Dates: start: 202010
  2. DACOMITINIB [Suspect]
     Active Substance: DACOMITINIB
     Dosage: 30 MG, 1X/DAY
     Route: 048
     Dates: start: 20210203
  3. DACOMITINIB [Suspect]
     Active Substance: DACOMITINIB
     Dosage: 15 MG, 1X/DAY
     Route: 048
  4. DACOMITINIB [Suspect]
     Active Substance: DACOMITINIB
     Dosage: UNK
     Dates: start: 202210
  5. CALCIUM CARBONATE\CHOLECALCIFEROL [Concomitant]
     Active Substance: CALCIUM CARBONATE\CHOLECALCIFEROL
     Dosage: 1 DF, DAILY

REACTIONS (14)
  - Haematochezia [Unknown]
  - Croup infectious [Unknown]
  - Neoplasm progression [Recovering/Resolving]
  - Rash [Not Recovered/Not Resolved]
  - Haemoglobin decreased [Recovering/Resolving]
  - Chills [Unknown]
  - Dermatitis acneiform [Unknown]
  - Pain [Unknown]
  - Respiratory disorder [Unknown]
  - Cardiomegaly [Unknown]
  - Full blood count abnormal [Unknown]
  - Pleural effusion [Unknown]
  - Dyspnoea [Unknown]
  - Blood albumin decreased [Unknown]

NARRATIVE: CASE EVENT DATE: 20210604
